FAERS Safety Report 9503528 (Version 1)
Quarter: 2013Q3

REPORT INFORMATION
  Report Type: Spontaneous
  Country: AU (occurrence: AU)
  Receive Date: 20130906
  Receipt Date: 20130906
  Transmission Date: 20140515
  Serious: Yes (Hospitalization)
  Sender: FDA-Public Use
  Company Number: AU-ABBOTT-13X-008-1142311-00

PATIENT
  Age: 53 Year
  Sex: Female

DRUGS (3)
  1. VALPROATE SODIUM [Suspect]
     Indication: PSYCHOTIC DISORDER
     Dates: start: 2012
  2. CLOZAPINE [Suspect]
     Indication: PSYCHOTIC DISORDER
     Dates: start: 201205
  3. CLOZAPINE [Suspect]
     Dates: start: 2012

REACTIONS (13)
  - Proteinuria [Unknown]
  - Tachycardia [Unknown]
  - Blood creatinine increased [Recovering/Resolving]
  - Tubulointerstitial nephritis [Recovering/Resolving]
  - Pyrexia [Unknown]
  - Abdominal pain [Unknown]
  - Diarrhoea [Unknown]
  - Eosinophilia [Unknown]
  - Renal impairment [Recovering/Resolving]
  - Hypotension [Unknown]
  - Tremor [Unknown]
  - Gait disturbance [Unknown]
  - Blood urea increased [Recovering/Resolving]
